FAERS Safety Report 15546697 (Version 1)
Quarter: 2018Q4

REPORT INFORMATION
  Report Type: Report from Study
  Country: GB (occurrence: GB)
  Receive Date: 20181024
  Receipt Date: 20181024
  Transmission Date: 20190205
  Serious: Yes (Death, Congenital Anomaly)
  Sender: FDA-Public Use
  Company Number: GB-PFIZER INC-2018430363

PATIENT
  Sex: Female

DRUGS (5)
  1. DALTEPARIN SODIUM [Suspect]
     Active Substance: DALTEPARIN SODIUM
     Dosage: UNK
     Route: 064
  2. REYATAZ [Suspect]
     Active Substance: ATAZANAVIR SULFATE
     Indication: HIV INFECTION
     Dosage: 300 MG, DAILY THROUGHOUT PREGNANCY
     Route: 064
     Dates: start: 20150611
  3. TRUVADA [Suspect]
     Active Substance: EMTRICITABINE\TENOFOVIR DISOPROXIL FUMARATE
     Dosage: 1 TAB/CAPS THROUGHOUT PREGNANCY
     Route: 064
     Dates: start: 20150611
  4. NORVIR [Suspect]
     Active Substance: RITONAVIR
     Dosage: 100 MG, DAILY THROUGHOUT PREGNANCY
     Route: 064
     Dates: start: 20150611
  5. TRUVADA [Suspect]
     Active Substance: EMTRICITABINE\TENOFOVIR DISOPROXIL FUMARATE
     Dosage: 1 TAB/CAPS THROUGHOUT PREGNANCY
     Route: 064
     Dates: start: 20150611

REACTIONS (8)
  - Maternal exposure during pregnancy [Unknown]
  - Death [Fatal]
  - Ventricular septal defect [Unknown]
  - Tracheo-oesophageal fistula [Unknown]
  - Trisomy 18 [Unknown]
  - Congenital heart valve disorder [Unknown]
  - Oesophageal atresia [Unknown]
  - Congenital central nervous system anomaly [Unknown]

NARRATIVE: CASE EVENT DATE: 20180731
